FAERS Safety Report 10221647 (Version 4)
Quarter: 2014Q3

REPORT INFORMATION
  Report Type: Spontaneous
  Country: GB (occurrence: GB)
  Receive Date: 20140606
  Receipt Date: 20140807
  Transmission Date: 20150326
  Serious: Yes (Hospitalization)
  Sender: FDA-Public Use
  Company Number: GB-PFIZER INC-2014151445

PATIENT
  Age: 72 Year
  Sex: Male

DRUGS (12)
  1. LANSOPRAZOLE. [Suspect]
     Active Substance: LANSOPRAZOLE
     Dosage: UNK
     Route: 048
  2. FUROSEMIDE. [Suspect]
     Active Substance: FUROSEMIDE
     Dosage: 245, UNK, UNK
     Route: 048
  3. LEVOTHYROXINE SODIUM. [Suspect]
     Active Substance: LEVOTHYROXINE SODIUM
     Dosage: 245, UNK,UNK
     Route: 065
  4. DIGOXIN. [Suspect]
     Active Substance: DIGOXIN
     Dosage: 62.5 MG, DAILY
     Route: 065
  5. GLIMEPIRIDE. [Suspect]
     Active Substance: GLIMEPIRIDE
     Dosage: UNK
     Route: 065
  6. SIMVASTATIN. [Suspect]
     Active Substance: SIMVASTATIN
     Dosage: 245, UNK, UNK
     Route: 048
  7. AMIODARONE HCL [Suspect]
     Active Substance: AMIODARONE HYDROCHLORIDE
     Dosage: UNK
     Route: 048
  8. DOXAZOSIN MESILATE [Suspect]
     Active Substance: DOXAZOSIN MESYLATE
     Dosage: 62.5 MG, DAILY
     Route: 065
  9. ONEALFA [Suspect]
     Active Substance: ALFACALCIDOL
     Dosage: UNK
     Route: 065
  10. CLOPIDOGREL SULFATE [Suspect]
     Active Substance: CLOPIDOGREL BISULFATE
     Dosage: UNK
     Route: 065
  11. EZETIMIBE. [Suspect]
     Active Substance: EZETIMIBE
     Dosage: UNK
     Route: 048
  12. NIFEDIPINE. [Suspect]
     Active Substance: NIFEDIPINE
     Dosage: 5 DF, UNK
     Route: 048

REACTIONS (3)
  - Toxicity to various agents [Unknown]
  - Renal failure [Unknown]
  - General physical health deterioration [Unknown]
